FAERS Safety Report 15224984 (Version 2)
Quarter: 2020Q2

REPORT INFORMATION
  Report Type: Spontaneous
  Country: US (occurrence: US)
  Receive Date: 20180801
  Receipt Date: 20200403
  Transmission Date: 20200713
  Serious: Yes (Death)
  Sender: FDA-Public Use
  Company Number: US-ASTRAZENECA-2018SE95517

PATIENT
  Age: 20351 Day
  Sex: Male
  Weight: 137.4 kg

DRUGS (20)
  1. VICTOZA [Suspect]
     Active Substance: LIRAGLUTIDE
     Route: 058
     Dates: start: 201602, end: 201610
  2. GLUCOPHAGE [Concomitant]
     Active Substance: METFORMIN HYDROCHLORIDE
  3. BYETTA [Suspect]
     Active Substance: EXENATIDE
     Route: 065
     Dates: start: 20090714
  4. GLIPIZIDE. [Concomitant]
     Active Substance: GLIPIZIDE
  5. XYLOCAINE [Concomitant]
     Active Substance: LIDOCAINE HYDROCHLORIDE
  6. AMBIEN [Concomitant]
     Active Substance: ZOLPIDEM TARTRATE
  7. DYAZIDE [Concomitant]
     Active Substance: HYDROCHLOROTHIAZIDE\TRIAMTERENE
  8. BYETTA [Suspect]
     Active Substance: EXENATIDE
     Route: 065
     Dates: start: 2009
  9. JANUVIA [Suspect]
     Active Substance: SITAGLIPTIN PHOSPHATE
     Route: 065
     Dates: start: 20100310
  10. VICTOZA [Suspect]
     Active Substance: LIRAGLUTIDE
     Dosage: 18 MG/3 ML PEN, 1.8 MG
     Route: 058
     Dates: start: 20160211, end: 201610
  11. METFORMIN [Concomitant]
     Active Substance: METFORMIN HYDROCHLORIDE
  12. ONGLYZA [Concomitant]
     Active Substance: SAXAGLIPTIN HYDROCHLORIDE
  13. FUROSEMIDE. [Concomitant]
     Active Substance: FUROSEMIDE
  14. METOPROLOL SUCCINATE. [Concomitant]
     Active Substance: METOPROLOL SUCCINATE
  15. HYDROCODONE-ACETAMINOPHEN [Concomitant]
     Active Substance: ACETAMINOPHEN\HYDROCODONE
  16. LEVEMIR [Concomitant]
     Active Substance: INSULIN DETEMIR
  17. LISINOPRIL. [Concomitant]
     Active Substance: LISINOPRIL
  18. JANUVIA [Suspect]
     Active Substance: SITAGLIPTIN PHOSPHATE
     Route: 065
     Dates: start: 2009, end: 2010
  19. OLLPIZADE [Concomitant]
  20. HUMALOG [Concomitant]
     Active Substance: INSULIN LISPRO

REACTIONS (3)
  - Pancreatic carcinoma metastatic [Fatal]
  - Multiple organ dysfunction syndrome [Fatal]
  - Cardiac arrest [Fatal]

NARRATIVE: CASE EVENT DATE: 20160826
